FAERS Safety Report 20486917 (Version 1)
Quarter: 2022Q1

REPORT INFORMATION
  Report Type: Spontaneous
  Country: US (occurrence: None)
  Receive Date: 20220217
  Receipt Date: 20220217
  Transmission Date: 20220423
  Serious: No
  Sender: FDA-Public Use
  Company Number: US-Merz Pharmaceuticals GmbH-22-00368

PATIENT
  Sex: Female
  Weight: 68 kg

DRUGS (5)
  1. XEOMIN [Suspect]
     Active Substance: INCOBOTULINUMTOXINA
     Indication: Skin wrinkling
     Route: 030
  2. XEOMIN [Suspect]
     Active Substance: INCOBOTULINUMTOXINA
     Indication: Skin wrinkling
  3. Belotero Balance Lidocaine US [Concomitant]
     Indication: Skin wrinkling
     Dosage: 1 ML NASOLABIAL FOLDS?1 ML INTO THE UPPER AND LOWER LIP
     Route: 058
  4. Belotero Balance Lidocaine US [Concomitant]
     Indication: Lip cosmetic procedure
     Dosage: 1 ML NASOLABIAL FOLDS?1 ML INTO THE UPPER AND LOWER LIP
     Route: 058
  5. Belotero Balance Lidocaine US [Concomitant]
     Indication: Lip cosmetic procedure

REACTIONS (1)
  - Off label use [Unknown]
